FAERS Safety Report 24078719 (Version 1)
Quarter: 2024Q3

REPORT INFORMATION
  Report Type: Spontaneous
  Country: IT (occurrence: IT)
  Receive Date: 20240711
  Receipt Date: 20240711
  Transmission Date: 20241016
  Serious: Yes (Other)
  Sender: ACCORD
  Company Number: None

PATIENT
  Age: 47 Year
  Sex: Female
  Weight: 54 kg

DRUGS (5)
  1. PACLITAXEL [Suspect]
     Active Substance: PACLITAXEL
     Indication: Adenocarcinoma metastatic
     Dosage: 270 MG IN 500 ML NACL 0.9 PERCENT IN 3 HOURS, PACLITAXEL ACCORD HEALTHCARE ITALY
     Dates: start: 20240626, end: 20240626
  2. DEXAMETHASONE [Concomitant]
     Active Substance: DEXAMETHASONE
     Indication: Prophylaxis of nausea and vomiting
     Dosage: 8 MG, VARCODES
     Dates: start: 20240625, end: 20240625
  3. CHLORPHENIRAMINE MALEATE [Concomitant]
     Active Substance: CHLORPHENIRAMINE MALEATE
     Indication: Prophylaxis of nausea and vomiting
     Dosage: 10 MG
     Dates: start: 20240626, end: 20240626
  4. METHYLPREDNISOLONE HEMISUCCINATE [Concomitant]
     Active Substance: METHYLPREDNISOLONE HEMISUCCINATE
     Indication: Prophylaxis of nausea and vomiting
     Dosage: 250 MG
     Dates: start: 20240626, end: 20240626
  5. ONDANSETRON [Concomitant]
     Active Substance: ONDANSETRON
     Indication: Prophylaxis of nausea and vomiting
     Dosage: 8 MG
     Dates: start: 20240626, end: 20240626

REACTIONS (1)
  - Anaphylactic reaction [Recovered/Resolved]

NARRATIVE: CASE EVENT DATE: 20240626
